FAERS Safety Report 20389681 (Version 1)
Quarter: 2022Q1

REPORT INFORMATION
  Report Type: Report from Study
  Country: DE (occurrence: DE)
  Receive Date: 20220128
  Receipt Date: 20220128
  Transmission Date: 20220423
  Serious: Yes (Death)
  Sender: FDA-Public Use
  Company Number: DE-SUN PHARMACEUTICAL INDUSTRIES LTD-2021RR-322370

PATIENT
  Age: 82 Year
  Sex: Male

DRUGS (7)
  1. SONIDEGIB [Suspect]
     Active Substance: SONIDEGIB
     Indication: Basal cell carcinoma
     Dosage: 200 MILLIGRAM, DAILY
     Route: 048
     Dates: start: 20201104
  2. Spironolacton/Furosemid [Concomitant]
     Indication: Pre-existing disease
     Dosage: 50 MILLIGRAM, DAILY
  3. LEVOTHYROXINE SODIUM [Concomitant]
     Active Substance: LEVOTHYROXINE SODIUM
     Indication: Pre-existing disease
     Dosage: 100 MICROGRAM, DAILY
  4. AMLODIPINE BESYLATE [Concomitant]
     Active Substance: AMLODIPINE BESYLATE
     Indication: Pre-existing disease
     Dosage: 5 MILLIGRAM, DAILY
  5. ALLOPURINOL [Concomitant]
     Active Substance: ALLOPURINOL
     Indication: Pre-existing disease
     Dosage: 300 MILLIGRAM, DAILY
  6. SIMVASTATIN [Concomitant]
     Active Substance: SIMVASTATIN
     Indication: Pre-existing disease
     Dosage: 20 MILLIGRAM, DAILY
  7. METAMIZOLE [Concomitant]
     Active Substance: METAMIZOLE
     Indication: Pre-existing disease
     Dosage: 500 MILLIGRAM

REACTIONS (1)
  - Disease progression [Fatal]

NARRATIVE: CASE EVENT DATE: 20210530
